FAERS Safety Report 8586473-1 (Version None)
Quarter: 2012Q3

REPORT INFORMATION
  Report Type: 
  Country: None (occurrence: None)
  Receive Date: 20120810
  Receipt Date: 20120803
  Transmission Date: 20120928
  Serious: Yes (Other)
  Sender: FDA-Public Use
  Company Number: BR-ROCHE-711105

PATIENT
  Sex: Female
  Weight: 91.4 kg

DRUGS (28)
  1. MABTHERA [Suspect]
     Dosage: DOSE:1000 MG/ML
     Route: 042
     Dates: start: 20110923, end: 20110923
  2. METICORTEN [Concomitant]
  3. DOMPERIDONE [Concomitant]
  4. CALCIUM [Concomitant]
  5. ADALAT [Concomitant]
  6. MIOSAN [Concomitant]
  7. MABTHERA [Suspect]
     Dosage: DOSE:1000 MG/ML
     Route: 042
     Dates: start: 20100701, end: 20100715
  8. CLONIDINE HYDROCHLORIDE [Concomitant]
  9. VENLIFT [Concomitant]
  10. SPIRIVA [Concomitant]
  11. FLUTICASONE PROPIONATE/SALMETEROL [Concomitant]
  12. MORPHINE SULFATE [Concomitant]
  13. MABTHERA [Suspect]
     Dosage: DOSE: 1000 MG/ML
     Route: 042
     Dates: start: 20080101, end: 20081201
  14. LYRICA [Concomitant]
  15. HYDROCORTISONE [Concomitant]
     Indication: PREMEDICATION
  16. LONITEN [Concomitant]
  17. LIVIAL [Concomitant]
  18. APRESOLINA [Concomitant]
  19. MABTHERA [Suspect]
     Dosage: DOSE:1000 MG/ML
     Route: 042
     Dates: start: 20101101, end: 20101101
  20. CELLCEPT [Concomitant]
  21. SYNTHROID [Concomitant]
  22. DIOVAN [Concomitant]
  23. MABTHERA [Suspect]
     Indication: SYSTEMIC LUPUS ERYTHEMATOSUS
     Dosage: DOSE: 1000 MG/ML;
     Route: 042
  24. OMEPRAZOLE [Concomitant]
  25. FLUTICASONE PROPIONATE/SALMETEROL [Concomitant]
  26. LEUKERAN [Concomitant]
  27. ISOSORBIDE MONONITRATE [Concomitant]
  28. METICORTEN [Concomitant]

REACTIONS (18)
  - ASTHENIA [None]
  - INTERVERTEBRAL DISC PROTRUSION [None]
  - URINARY TRACT INFECTION [None]
  - HYPOGLOBULINAEMIA [None]
  - HYPERTENSIVE CRISIS [None]
  - SYNCOPE [None]
  - CHILLS [None]
  - IMMUNODEFICIENCY [None]
  - HYPOTENSION [None]
  - NEPHROLITHIASIS [None]
  - SYSTEMIC LUPUS ERYTHEMATOSUS [None]
  - PAIN [None]
  - PYREXIA [None]
  - VOMITING [None]
  - BREAST DISORDER [None]
  - CHROMATURIA [None]
  - HEADACHE [None]
  - DRUG INEFFECTIVE [None]
